FAERS Safety Report 8462012 (Version 3)
Quarter: 2012Q4

REPORT INFORMATION
  Report Type: Report from Study
  Country: US (occurrence: US)
  Receive Date: 20120315
  Receipt Date: 20120904
  Transmission Date: 20130627
  Serious: Yes (Hospitalization, Congenital Anomaly)
  Sender: FDA-Public Use
  Company Number: US-ROCHE-GNE323487

PATIENT
  Age: 0 Year
  Sex: Male

DRUGS (11)
  1. OMALIZUMAB [Suspect]
     Indication: ASTHMA
     Dosage: frequency: not reported
     Route: 064
     Dates: start: 20060324
  2. PREVACID [Concomitant]
     Indication: GASTROOESOPHAGEAL REFLUX DISEASE
     Dosage: dose: 15 MI
     Route: 048
     Dates: start: 20110323, end: 20110329
  3. PREVACID [Concomitant]
     Dates: start: 20110407
  4. ZANTAC [Concomitant]
     Indication: GASTROOESOPHAGEAL REFLUX DISEASE
     Dosage: UNK
     Route: 048
     Dates: start: 20110329, end: 20110407
  5. ALBUTEROL NEBULIZER [Concomitant]
     Indication: BRONCHIOLITIS
     Route: 055
     Dates: start: 20110329, end: 20110407
  6. ALBUTEROL NEBULIZER [Concomitant]
     Route: 055
     Dates: start: 20110423, end: 20110425
  7. ALBUTEROL NEBULIZER [Concomitant]
     Route: 055
     Dates: start: 20110529, end: 20110601
  8. XOPENEX [Concomitant]
     Indication: TRACHEOMALACIA
     Route: 055
     Dates: start: 20110601
  9. XOPENEX [Concomitant]
     Indication: LARYNGOMALACIA
  10. XOPENEX [Concomitant]
     Indication: BRONCHOMALACIA
  11. XOPENEX [Concomitant]
     Indication: BRONCHIOLITIS

REACTIONS (1)
  - Laryngomalacia [Not Recovered/Not Resolved]
